FAERS Safety Report 15061295 (Version 1)
Quarter: 2018Q2

REPORT INFORMATION
  Report Type: Spontaneous
  Country: US (occurrence: US)
  Receive Date: 20180625
  Receipt Date: 20180625
  Transmission Date: 20180711
  Serious: No
  Sender: FDA-Public Use
  Company Number: US-ROCHE-1966980

PATIENT
  Sex: Male

DRUGS (12)
  1. TRAMADOL. [Concomitant]
     Active Substance: TRAMADOL
  2. KEFLEX [Concomitant]
     Active Substance: CEPHALEXIN
  3. BUTRANS [Concomitant]
     Active Substance: BUPRENORPHINE
  4. PLAQUENIL [Concomitant]
     Active Substance: HYDROXYCHLOROQUINE SULFATE
  5. GABAPENTIN. [Concomitant]
     Active Substance: GABAPENTIN
  6. RESTASIS [Concomitant]
     Active Substance: CYCLOSPORINE
  7. MEGESTROL ACETATE. [Concomitant]
     Active Substance: MEGESTROL ACETATE
  8. ASPIRIN. [Concomitant]
     Active Substance: ASPIRIN
  9. ACETAZOLAMIDE. [Concomitant]
     Active Substance: ACETAZOLAMIDE
  10. HYDROCODONE BITARTRATE. [Concomitant]
     Active Substance: HYDROCODONE BITARTRATE
  11. ZANTAC [Concomitant]
     Active Substance: RANITIDINE HYDROCHLORIDE
  12. XELODA [Suspect]
     Active Substance: CAPECITABINE
     Indication: OESOPHAGEAL CARCINOMA
     Route: 048
     Dates: start: 20170621

REACTIONS (5)
  - Nausea [Unknown]
  - Hypersomnia [Unknown]
  - Underdose [Unknown]
  - Pain [Unknown]
  - Constipation [Unknown]
